FAERS Safety Report 23500165 (Version 4)
Quarter: 2024Q2

REPORT INFORMATION
  Report Type: Spontaneous
  Country: FR (occurrence: FR)
  Receive Date: 20240208
  Receipt Date: 20240513
  Transmission Date: 20240715
  Serious: Yes (Hospitalization, Other)
  Sender: FDA-Public Use
  Company Number: FR-SANOFI-01926330

PATIENT
  Age: 68 Year
  Sex: Female
  Weight: 60.8 kg

DRUGS (8)
  1. GLYBURIDE [Suspect]
     Active Substance: GLYBURIDE
     Indication: Diabetes mellitus
     Dosage: 1 DF, BID
     Dates: start: 2009
  2. GLYBURIDE [Suspect]
     Active Substance: GLYBURIDE
     Dosage: 15 MG
     Dates: start: 20121031
  3. GLYBURIDE [Suspect]
     Active Substance: GLYBURIDE
     Dosage: 0.5 DF, BID
     Dates: start: 2009, end: 20240126
  4. GLICLAZIDE [Suspect]
     Active Substance: GLICLAZIDE
     Indication: Diabetes mellitus
     Dosage: UNK
  5. METFORMIN [Concomitant]
     Active Substance: METFORMIN HYDROCHLORIDE
     Indication: Diabetes mellitus
     Dosage: 3 TABLETS (1000)
     Route: 048
     Dates: start: 20121031
  6. XULTOPHY 100/3.6 [Concomitant]
     Active Substance: INSULIN DEGLUDEC\LIRAGLUTIDE
     Indication: Diabetes mellitus
     Dosage: 24 IU
     Route: 058
     Dates: start: 202301
  7. PRASTIN [Concomitant]
     Indication: Blood cholesterol
     Dosage: 5 MG
     Route: 048
     Dates: start: 20210208
  8. GABAPENTIN [Concomitant]
     Active Substance: GABAPENTIN
     Indication: Neuropathy peripheral
     Dosage: 800 MG
     Dates: start: 20210208

REACTIONS (14)
  - Hemiplegia [Unknown]
  - Altered state of consciousness [Unknown]
  - Seizure [Unknown]
  - Mobility decreased [Recovered/Resolved]
  - Vertigo [Recovered/Resolved]
  - Cognitive disorder [Unknown]
  - Weight decreased [Unknown]
  - Decreased appetite [Recovering/Resolving]
  - Muscle atrophy [Unknown]
  - Aphasia [Unknown]
  - Memory impairment [Recovered/Resolved]
  - Muscular weakness [Recovered/Resolved]
  - Hypoglycaemia [Unknown]
  - Confusional state [Unknown]

NARRATIVE: CASE EVENT DATE: 20231201
